FAERS Safety Report 5777662-X (Version None)
Quarter: 2008Q2

REPORT INFORMATION
  Report Type: 
  Country: None (occurrence: None)
  Receive Date: 20080601
  Receipt Date: 20080109
  Transmission Date: 20081010
  Serious: No
  Sender: FDA-Public Use
  Company Number: US200801000104

PATIENT
  Age: 62 Year
  Sex: Female
  Weight: 136.1 kg

DRUGS (4)
  1. BYETTA [Suspect]
     Indication: TYPE 2 DIABETES MELLITUS
     Dosage: 5 UG, 2/D, SUBCUTANEOUS ; 10 UG, 2/D, SUBCUTANEOUS
     Route: 058
     Dates: start: 20070601, end: 20071201
  2. BYETTA [Suspect]
     Indication: TYPE 2 DIABETES MELLITUS
     Dosage: 5 UG, 2/D, SUBCUTANEOUS ; 10 UG, 2/D, SUBCUTANEOUS
     Route: 058
     Dates: start: 20071201
  3. AMARYL [Concomitant]
  4. TRICOR [Concomitant]

REACTIONS (8)
  - ASTHMA [None]
  - BLOOD GLUCOSE DECREASED [None]
  - DIZZINESS [None]
  - GLYCOSYLATED HAEMOGLOBIN INCREASED [None]
  - INCORRECT DOSE ADMINISTERED [None]
  - NAUSEA [None]
  - SOMNOLENCE [None]
  - VOMITING [None]
